FAERS Safety Report 5994374-8 (Version None)
Quarter: 2008Q4

REPORT INFORMATION
  Report Type: 
  Country: None (occurrence: None)
  Receive Date: 20081212
  Receipt Date: 20080916
  Transmission Date: 20090506
  Serious: No
  Sender: FDA-Public Use
  Company Number: US-ABBOTT-08P-163-0475105-00

PATIENT
  Sex: Female
  Weight: 58.112 kg

DRUGS (6)
  1. HUMIRA [Suspect]
     Indication: CROHN'S DISEASE
     Route: 050
  2. OXICILLIN [Concomitant]
     Indication: INFECTION
     Route: 048
  3. MERCAPTOPURINE [Concomitant]
     Indication: CROHN'S DISEASE
     Route: 048
  4. ZOLPIDEM TARTRATE [Concomitant]
     Indication: INSOMNIA
     Route: 048
  5. ALLOPURINOL [Concomitant]
     Indication: ANXIETY
     Route: 048
  6. BUPROPION HCL [Concomitant]
     Indication: DEPRESSION
     Route: 048

REACTIONS (2)
  - INJECTION SITE REACTION [None]
  - RASH PAPULAR [None]
